FAERS Safety Report 9460147 (Version 1)
Quarter: 2013Q3

REPORT INFORMATION
  Report Type: Spontaneous
  Country: IT (occurrence: IT)
  Receive Date: 20130815
  Receipt Date: 20130815
  Transmission Date: 20140515
  Serious: Yes (Hospitalization, Other)
  Sender: FDA-Public Use
  Company Number: IT-TEVA-416582ISR

PATIENT
  Age: 83 Year
  Sex: Male

DRUGS (7)
  1. CITALOPRAM [Suspect]
     Indication: DEPRESSION
     Dosage: 40 MILLIGRAM DAILY;
     Route: 048
     Dates: start: 20100101, end: 20130511
  2. CARDIOASPIRIN 100 MG [Interacting]
     Indication: PROPHYLAXIS
     Dosage: 1 DOSAGE FORMS DAILY;
     Route: 048
     Dates: start: 20100101, end: 20130511
  3. ENAPREN 20 MG [Concomitant]
  4. LASIX 25 MG [Concomitant]
  5. SIVASTIN 20 MG [Concomitant]
  6. OLANZAPINA [Concomitant]
  7. MIRTAZAPINA [Concomitant]

REACTIONS (4)
  - Subarachnoid haemorrhage [Recovering/Resolving]
  - Head injury [Unknown]
  - Fall [Unknown]
  - Drug interaction [Recovering/Resolving]
